FAERS Safety Report 8308909-3 (Version None)
Quarter: 2012Q2

REPORT INFORMATION
  Report Type: 
  Country: None (occurrence: None)
  Receive Date: 20120424
  Receipt Date: 20120419
  Transmission Date: 20120825
  Serious: Yes (Hospitalization, Disabling, Other)
  Sender: FDA-Public Use
  Company Number: GB-AMGEN-GBRSP2012021621

PATIENT
  Age: 77 Year
  Sex: Male
  Weight: 98 kg

DRUGS (6)
  1. NPLATE [Suspect]
     Indication: IDIOPATHIC THROMBOCYTOPENIC PURPURA
     Dosage: 721 MUG, QWK
     Route: 058
     Dates: start: 20111122, end: 20120321
  2. ACYCLOVIR [Concomitant]
     Indication: HERPES SIMPLEX
     Dosage: 400 MG, UNK
     Route: 048
     Dates: start: 20120315
  3. PENICILLIN [Concomitant]
     Indication: SPLENECTOMY
     Dosage: 500 MG, BID
     Route: 048
  4. ALENDRONIC ACID [Concomitant]
     Indication: OSTEOPOROSIS
     Dosage: 70 MG, QWK
     Route: 048
  5. TAMSULOSIN HCL [Concomitant]
     Indication: HYPERTONIC BLADDER
     Dosage: 400 MG, QD
     Route: 048
  6. FLUTICASONE PROPIONATE/SALMETEROL [Concomitant]
     Indication: ASTHMA
     Dosage: 250 UNK, BID
     Route: 055

REACTIONS (2)
  - EMBOLIC STROKE [None]
  - CEREBROVASCULAR ACCIDENT [None]
